FAERS Safety Report 7539646-0 (Version None)
Quarter: 2011Q2

REPORT INFORMATION
  Report Type: 
  Country: None (occurrence: None)
  Receive Date: 20110610
  Receipt Date: 20110607
  Transmission Date: 20111010
  Serious: Yes (Other)
  Sender: FDA-Public Use
  Company Number: US-PFIZER INC-2011107494

PATIENT
  Sex: Female
  Weight: 78 kg

DRUGS (7)
  1. SIMVASTATIN [Concomitant]
     Dosage: 20 MG, 1X/DAY
     Route: 048
  2. GLIMEPIRIDE [Concomitant]
     Dosage: 4 MG, 2X/DAY
     Route: 048
  3. DARIFENACIN [Concomitant]
     Dosage: 7.5 MG, UNK
  4. CHANTIX [Suspect]
     Indication: SMOKING CESSATION THERAPY
     Dosage: 0.5 MG, 1X/DAY
     Route: 048
     Dates: start: 20110501, end: 20110501
  5. CHANTIX [Suspect]
     Dosage: 1 MG, 2X/DAY
     Dates: start: 20110501, end: 20110516
  6. INSULIN [Concomitant]
     Dosage: UNK
  7. MAPROTILINE [Concomitant]
     Indication: DEPRESSION
     Dosage: 25 MG, 3X/DAY
     Route: 048

REACTIONS (2)
  - DYSGEUSIA [None]
  - DEPRESSION [None]
